FAERS Safety Report 8676994 (Version 2)
Quarter: 2013Q1

REPORT INFORMATION
  Report Type: Spontaneous
  Country: JP (occurrence: JP)
  Receive Date: 20120723
  Receipt Date: 20130104
  Transmission Date: 20140127
  Serious: Yes (Hospitalization)
  Sender: FDA-Public Use
  Company Number: JP-JNJFOC-20120707522

PATIENT
  Age: 33 Year
  Sex: Female

DRUGS (4)
  1. RISPERDAL [Suspect]
     Indication: PRODUCT USED FOR UNKNOWN INDICATION
     Route: 048
  2. BIPERIDEN HYDROCHLORIDE [Concomitant]
     Route: 065
  3. QUETIAPINE FUMARATE [Concomitant]
     Route: 048
  4. WYPAX [Concomitant]
     Route: 048

REACTIONS (2)
  - Peritonitis [Recovered/Resolved]
  - Menstruation irregular [Unknown]
